FAERS Safety Report 25541704 (Version 2)
Quarter: 2025Q3

REPORT INFORMATION
  Report Type: Report from Study
  Country: US (occurrence: US)
  Receive Date: 20250711
  Receipt Date: 20250904
  Transmission Date: 20251020
  Serious: Yes (Death, Other)
  Sender: ACADIA PHARMACEUTICALS
  Company Number: US-ACADIA PHARMACEUTICALS INC.-ACA-2025-PIM-008062

PATIENT
  Sex: Female

DRUGS (11)
  1. NUPLAZID [Suspect]
     Active Substance: PIMAVANSERIN TARTRATE
     Indication: Parkinson^s disease psychosis
     Dosage: 34 MILLIGRAM, QD
     Route: 048
  2. BUSPIRONE HCL [Concomitant]
     Active Substance: BUSPIRONE HYDROCHLORIDE
  3. ENTACAPONE [Concomitant]
     Active Substance: ENTACAPONE
  4. FAMCICLOVIR [Concomitant]
     Active Substance: FAMCICLOVIR
  5. GABAPENTIN [Concomitant]
     Active Substance: GABAPENTIN
  6. HYDROXYZINE [Concomitant]
     Active Substance: HYDROXYZINE HYDROCHLORIDE
  7. LEVETIRACETAM [Concomitant]
     Active Substance: LEVETIRACETAM
  8. NYSTATIN [Concomitant]
     Active Substance: NYSTATIN
  9. RASAGILINE MESYLATE [Concomitant]
     Active Substance: RASAGILINE MESYLATE
  10. SERTRALINE HYDROCHLORIDE [Concomitant]
     Active Substance: SERTRALINE HYDROCHLORIDE
  11. TRIAMCINOLONE [Concomitant]
     Active Substance: TRIAMCINOLONE

REACTIONS (2)
  - Death [Fatal]
  - Drug ineffective [Unknown]
